FAERS Safety Report 7242594-7 (Version None)
Quarter: 2010Q4

REPORT INFORMATION
  Report Type: 
  Country: None (occurrence: None)
  Receive Date: 20101130
  Receipt Date: 20100601
  Transmission Date: 20110411
  Serious: Yes (Hospitalization)
  Sender: FDA-Public Use
  Company Number: US201006000364

PATIENT
  Age: 64 Year
  Sex: Female
  Weight: 112 kg

DRUGS (14)
  1. BYETTA [Suspect]
     Indication: TYPE 2 DIABETES MELLITUS
     Dosage: SUBCUTANEOUS
     Route: 058
     Dates: start: 20070101
  2. EXENATIDE PEN, DISPOSABLE DEVICE (EXENATIDE PEN) [Concomitant]
  3. AVALIDE [Concomitant]
  4. VITAMINS NOS (VITAMINS NOS) [Concomitant]
  5. ATENOLOL [Concomitant]
  6. XANAX [Concomitant]
  7. ZETIA [Concomitant]
  8. LIPITOR [Concomitant]
  9. PLAVIX [Concomitant]
  10. ASPIRIN [Concomitant]
  11. LASIX [Concomitant]
  12. CYMBALTA [Concomitant]
  13. NOVOLOG [Concomitant]
  14. SYMLIN [Concomitant]

REACTIONS (4)
  - DEHYDRATION [None]
  - NAUSEA [None]
  - OFF LABEL USE [None]
  - VOMITING [None]
